FAERS Safety Report 24232540 (Version 1)
Quarter: 2024Q3

REPORT INFORMATION
  Report Type: Spontaneous
  Country: CN (occurrence: CN)
  Receive Date: 20240821
  Receipt Date: 20240821
  Transmission Date: 20241017
  Serious: Yes (Hospitalization)
  Sender: NOVARTIS
  Company Number: CN-002147023-NVSC2024CN169044

PATIENT
  Age: 71 Year
  Sex: Male
  Weight: 50 kg

DRUGS (1)
  1. CARBAMAZEPINE [Suspect]
     Active Substance: CARBAMAZEPINE
     Indication: Headache
     Dosage: 0.200 G, BID
     Route: 048
     Dates: start: 20240813, end: 20240815

REACTIONS (3)
  - Dizziness [Recovering/Resolving]
  - Nausea [Recovering/Resolving]
  - Off label use [Unknown]

NARRATIVE: CASE EVENT DATE: 20240813
